FAERS Safety Report 7400663-2 (Version None)
Quarter: 2011Q2

REPORT INFORMATION
  Report Type: 
  Country: None (occurrence: None)
  Receive Date: 20110407
  Receipt Date: 20110401
  Transmission Date: 20111010
  Serious: Yes (Hospitalization)
  Sender: FDA-Public Use
  Company Number: A0773198A

PATIENT
  Age: 69 Year
  Sex: Female
  Weight: 109.1 kg

DRUGS (10)
  1. METFORMIN HCL [Concomitant]
  2. NEURONTIN [Concomitant]
  3. NORVASC [Concomitant]
  4. GLUCOPHAGE [Concomitant]
  5. ZETIA [Concomitant]
  6. AMARYL [Concomitant]
  7. MULTI-VITAMIN [Concomitant]
  8. AVANDIA [Suspect]
     Indication: DIABETES MELLITUS
     Route: 048
     Dates: start: 20010629, end: 20041001
  9. ALTACE [Concomitant]
  10. CELEXA [Concomitant]

REACTIONS (5)
  - ANAEMIA [None]
  - CARDIAC FAILURE CONGESTIVE [None]
  - CARDIAC DISORDER [None]
  - ANGINA PECTORIS [None]
  - CORONARY ARTERY DISEASE [None]
